FAERS Safety Report 9328891 (Version 1)
Quarter: 2013Q2

REPORT INFORMATION
  Report Type: Spontaneous
  Country: US (occurrence: US)
  Receive Date: 20130604
  Receipt Date: 20130604
  Transmission Date: 20140414
  Serious: No
  Sender: FDA-Public Use
  Company Number: US-SANOFI-AVENTIS-2013SA019849

PATIENT
  Age: 72 Year
  Sex: Male
  Weight: 117 kg

DRUGS (3)
  1. SOLOSTAR [Suspect]
     Indication: TYPE 2 DIABETES MELLITUS
     Dates: start: 201211
  2. LANTUS SOLOSTAR [Suspect]
     Indication: TYPE 2 DIABETES MELLITUS
     Dosage: DOSE:50 UNIT(S)
     Route: 051
     Dates: start: 201211
  3. HUMALOG [Suspect]

REACTIONS (5)
  - Injection site haemorrhage [Unknown]
  - Injection site discolouration [Unknown]
  - Increased appetite [Unknown]
  - Injection site pain [Unknown]
  - Incorrect storage of drug [Unknown]
